FAERS Safety Report 10384755 (Version 2)
Quarter: 2014Q3

REPORT INFORMATION
  Report Type: Spontaneous
  Country: US (occurrence: US)
  Receive Date: 20140814
  Receipt Date: 20140814
  Transmission Date: 20150326
  Serious: Yes (Hospitalization, Other)
  Sender: FDA-Public Use
  Company Number: US-009507513-2009SP023508

PATIENT
  Sex: Female

DRUGS (1)
  1. NUVARING [Suspect]
     Active Substance: ETHINYL ESTRADIOL\ETONOGESTREL
     Indication: CONTRACEPTION
     Dates: start: 2003, end: 20061208

REACTIONS (19)
  - Narcolepsy [Not Recovered/Not Resolved]
  - Ligament sprain [Unknown]
  - Bronchitis [Unknown]
  - Uterine leiomyoma [Unknown]
  - Hypertension [Not Recovered/Not Resolved]
  - Plantar fascial fibromatosis [Unknown]
  - Muscle spasms [Unknown]
  - Sleep apnoea syndrome [Unknown]
  - Type 2 diabetes mellitus [Not Recovered/Not Resolved]
  - Deep vein thrombosis [Unknown]
  - Uterine polyp [Unknown]
  - Pulmonary sarcoidosis [Not Recovered/Not Resolved]
  - Ligament sprain [Unknown]
  - Dysmenorrhoea [Unknown]
  - Macular degeneration [Unknown]
  - Pulmonary embolism [Recovering/Resolving]
  - Menorrhagia [Unknown]
  - Thrombosis [Unknown]
  - Musculoskeletal pain [Unknown]

NARRATIVE: CASE EVENT DATE: 200308
